FAERS Safety Report 4630334-7 (Version None)
Quarter: 2005Q2

REPORT INFORMATION
  Report Type: 
  Country: None (occurrence: None)
  Receive Date: 20050408
  Receipt Date: 20050309
  Transmission Date: 20051028
  Serious: Yes (Other)
  Sender: FDA-Public Use
  Company Number: PHRM2005FR01025

PATIENT
  Age: 62 Year
  Sex: Female

DRUGS (3)
  1. FRACTAL [Suspect]
     Indication: HYPERCHOLESTEROLAEMIA
     Dosage: 80 MG, QD
     Route: 048
     Dates: start: 20050131, end: 20050218
  2. ACTONEL [Concomitant]
     Dosage: 35 MG/DAY
     Route: 048
     Dates: start: 20030408
  3. OESTRODOSE [Concomitant]
     Indication: OSTEOPOROSIS
     Dates: start: 20050131

REACTIONS (5)
  - ANGIONEUROTIC OEDEMA [None]
  - BURNING SENSATION [None]
  - FLUSHING [None]
  - RASH [None]
  - TACHYCARDIA [None]
